FAERS Safety Report 4909693-3 (Version None)
Quarter: 2006Q1

REPORT INFORMATION
  Report Type: 
  Country: None (occurrence: None)
  Receive Date: 20060209
  Receipt Date: 20060126
  Transmission Date: 20060701
  Serious: Yes (Hospitalization)
  Sender: FDA-Public Use
  Company Number: 2006BI001637

PATIENT
  Age: 63 Year
  Sex: Female
  Weight: 47.6277 kg

DRUGS (3)
  1. AVONEX LYOPHILIZED [Suspect]
     Indication: MULTIPLE SCLEROSIS
     Dosage: 30 UG; QW; IM
     Route: 030
     Dates: start: 20020101, end: 20030801
  2. AVONEX LIQUID [Suspect]
     Indication: MULTIPLE SCLEROSIS
     Dosage: 30 UG; QW; IM
     Route: 030
     Dates: start: 20030801
  3. PREMARIN [Concomitant]

REACTIONS (16)
  - ARTHRALGIA [None]
  - COLITIS [None]
  - DEHYDRATION [None]
  - DIVERTICULITIS [None]
  - DIZZINESS [None]
  - FATIGUE [None]
  - FEELING HOT [None]
  - HYPERTENSION [None]
  - HYPOAESTHESIA [None]
  - INFLUENZA LIKE ILLNESS [None]
  - IRRITABLE BOWEL SYNDROME [None]
  - NAUSEA [None]
  - ORAL INTAKE REDUCED [None]
  - RECTAL HAEMORRHAGE [None]
  - STRESS [None]
  - WEIGHT DECREASED [None]
